FAERS Safety Report 8946832 (Version 3)
Quarter: 2013Q1

REPORT INFORMATION
  Report Type: Spontaneous
  Country: US (occurrence: US)
  Receive Date: 20121205
  Receipt Date: 20130318
  Transmission Date: 20140127
  Serious: Yes (Hospitalization)
  Sender: FDA-Public Use
  Company Number: US-GLAXOSMITHKLINE-A1000194A

PATIENT
  Age: 52 Year
  Sex: Female
  Weight: 68 kg

DRUGS (13)
  1. VOTRIENT [Suspect]
     Indication: RETROPERITONEAL CANCER
     Dosage: 800MG PER DAY
     Route: 048
  2. CYMBALTA [Concomitant]
  3. TYLENOL WITH CODEINE #3 [Concomitant]
  4. AMLODIPINE [Concomitant]
  5. ZYRTEC [Concomitant]
  6. VICODIN [Concomitant]
  7. ACYCLOVIR [Concomitant]
  8. METOPROLOL [Concomitant]
  9. ESTROPIPATE [Concomitant]
  10. TEMAZEPAM [Concomitant]
  11. LOSARTAN [Concomitant]
  12. SUPER B [Concomitant]
  13. IRON TABLET [Concomitant]

REACTIONS (10)
  - Tongue paralysis [Unknown]
  - Blood pressure increased [Unknown]
  - Spinal pain [Unknown]
  - Abdominal pain upper [Unknown]
  - Blood pressure decreased [Unknown]
  - Headache [Unknown]
  - Fatigue [Unknown]
  - Dyspnoea [Unknown]
  - Palpitations [Unknown]
  - Constipation [Unknown]
